FAERS Safety Report 24150567 (Version 2)
Quarter: 2024Q3

REPORT INFORMATION
  Report Type: Spontaneous
  Country: US (occurrence: US)
  Receive Date: 20240730
  Receipt Date: 20240730
  Transmission Date: 20241016
  Serious: Yes (Other)
  Sender: ROCHE
  Company Number: US-ROCHE-10000030923

PATIENT
  Sex: Female

DRUGS (3)
  1. TRASTUZUMAB [Suspect]
     Active Substance: TRASTUZUMAB
     Indication: Breast cancer metastatic
     Route: 065
  2. TUKYSA [Suspect]
     Active Substance: TUCATINIB
     Indication: Breast cancer metastatic
     Route: 065
     Dates: start: 202209
  3. CAPECITABINE [Suspect]
     Active Substance: CAPECITABINE
     Indication: Breast cancer metastatic
     Route: 065

REACTIONS (8)
  - Balance disorder [Unknown]
  - Fall [Unknown]
  - Hip fracture [Unknown]
  - Arthralgia [Unknown]
  - Weight decreased [Unknown]
  - Nausea [Unknown]
  - Anxiety [Unknown]
  - Neck pain [Unknown]

NARRATIVE: CASE EVENT DATE: 20231001
